FAERS Safety Report 16723451 (Version 1)
Quarter: 2019Q3

REPORT INFORMATION
  Report Type: Spontaneous
  Country: ES (occurrence: ES)
  Receive Date: 20190821
  Receipt Date: 20190821
  Transmission Date: 20191005
  Serious: Yes (Hospitalization)
  Sender: FDA-Public Use
  Company Number: ES-TEVA-2019-ES-1094216

PATIENT
  Age: 88 Year
  Sex: Female

DRUGS (2)
  1. ESPIRONOLACTONA (326A) [Suspect]
     Active Substance: SPIRONOLACTONE
     Route: 030
     Dates: start: 20190117, end: 20190712
  2. BISOPROLOL (2328A) [Suspect]
     Active Substance: BISOPROLOL
     Route: 048
     Dates: start: 20181105

REACTIONS (1)
  - Hyperkalaemia [Recovered/Resolved]

NARRATIVE: CASE EVENT DATE: 20190712
